FAERS Safety Report 10619740 (Version 1)
Quarter: 2014Q4

REPORT INFORMATION
  Report Type: Spontaneous
  Country: US (occurrence: None)
  Receive Date: 20141201
  Receipt Date: 20141201
  Transmission Date: 20150529
  Serious: No
  Sender: FDA-Public Use
  Company Number: None

PATIENT
  Age: 61 Year
  Sex: Female
  Weight: 72.58 kg

DRUGS (1)
  1. TERCONAZOLE. [Suspect]
     Active Substance: TERCONAZOLE
     Indication: FUNGAL INFECTION
     Dosage: 1 SUP. PER DAY AT BEDTIME
     Route: 067
     Dates: start: 20141125, end: 20141128

REACTIONS (7)
  - Body temperature increased [None]
  - Headache [None]
  - Unevaluable event [None]
  - Arthralgia [None]
  - Dry skin [None]
  - Dry eye [None]
  - Chills [None]

NARRATIVE: CASE EVENT DATE: 20141127
